FAERS Safety Report 4382520-1 (Version None)
Quarter: 2004Q2

REPORT INFORMATION
  Report Type: 
  Country: None (occurrence: None)
  Receive Date: 20040617
  Receipt Date: 20040607
  Transmission Date: 20050107
  Serious: Yes (Other)
  Sender: FDA-Public Use
  Company Number: 2004038177

PATIENT
  Sex: Male

DRUGS (2)
  1. VIAGRA [Suspect]
     Indication: ILL-DEFINED DISORDER
     Dosage: 100 MG, ORAL
     Route: 048
  2. ALPROSTADIL (ALPROSTADIL) [Suspect]
     Indication: ILL-DEFINED DISORDER

REACTIONS (1)
  - URINARY RETENTION [None]
